FAERS Safety Report 4745939-2 (Version None)
Quarter: 2005Q3

REPORT INFORMATION
  Report Type: 
  Country: None (occurrence: None)
  Receive Date: 20050816
  Receipt Date: 20050727
  Transmission Date: 20060218
  Serious: Yes (Death, Hospitalization)
  Sender: FDA-Public Use
  Company Number: DE-GLAXOSMITHKLINE-B0388633B

PATIENT
  Age: 62 Year
  Sex: Male
  Weight: 84.1 kg

DRUGS (4)
  1. TOPOTECAN [Suspect]
     Dosage: 1MGM2 PER DAY
     Route: 042
     Dates: start: 20050720
  2. CISPLATIN [Suspect]
     Dosage: 75MGM2 PER DAY
     Route: 042
     Dates: start: 20050720, end: 20050720
  3. DEXAMETHASONE [Concomitant]
     Dosage: 4MG THREE TIMES PER DAY
     Route: 048
     Dates: start: 20050722
  4. RADIOTHERAPY [Concomitant]

REACTIONS (9)
  - DEHYDRATION [None]
  - GASTRIC HAEMORRHAGE [None]
  - HEADACHE [None]
  - METASTASES TO CENTRAL NERVOUS SYSTEM [None]
  - PANCYTOPENIA [None]
  - RENAL FAILURE [None]
  - SOMNOLENCE [None]
  - VERTIGO [None]
  - VOMITING [None]
